FAERS Safety Report 13269541 (Version 1)
Quarter: 2017Q1

REPORT INFORMATION
  Report Type: Spontaneous
  Country: US (occurrence: US)
  Receive Date: 20170224
  Receipt Date: 20170224
  Transmission Date: 20170428
  Serious: Yes (Other)
  Sender: FDA-Public Use
  Company Number: US-BAYER-2017-034656

PATIENT
  Sex: Male

DRUGS (2)
  1. ALKA-SELTZER PLUS COLD FORMULA [Suspect]
     Active Substance: ASPIRIN\CHLORPHENIRAMINE MALEATE\PHENYLEPHRINE BITARTRATE
     Indication: HYPERSENSITIVITY
     Dosage: UNK
     Route: 048
  2. ALKA-SELTZER PLUS COLD FORMULA [Suspect]
     Active Substance: ASPIRIN\CHLORPHENIRAMINE MALEATE\PHENYLEPHRINE BITARTRATE
     Indication: NASOPHARYNGITIS

REACTIONS (2)
  - Abdominal pain upper [Unknown]
  - Gastric ulcer [Unknown]
